FAERS Safety Report 5293182-3 (Version None)
Quarter: 2007Q2

REPORT INFORMATION
  Report Type: 
  Country: None (occurrence: None)
  Receive Date: 20070411
  Receipt Date: 20070405
  Transmission Date: 20071010
  Serious: Yes (Life-Threatening)
  Sender: FDA-Public Use
  Company Number: 2007AP01652

PATIENT
  Age: 33 Year
  Sex: Female

DRUGS (3)
  1. MARCAINE [Suspect]
     Indication: CAESAREAN SECTION
     Route: 037
     Dates: start: 20070313, end: 20070313
  2. FLUMARIN [Suspect]
     Route: 042
     Dates: start: 20070313, end: 20070313
  3. ATONIN-O [Suspect]
     Route: 042
     Dates: start: 20070313, end: 20070313

REACTIONS (1)
  - STATUS ASTHMATICUS [None]
